FAERS Safety Report 6012289-6 (Version None)
Quarter: 2008Q4

REPORT INFORMATION
  Report Type: 
  Country: None (occurrence: None)
  Receive Date: 20081218
  Receipt Date: 20081117
  Transmission Date: 20090506
  Serious: No
  Sender: FDA-Public Use
  Company Number: US-ASTRAZENECA-2008UW24282

PATIENT
  Age: 37 Year
  Sex: Female
  Weight: 56.7 kg

DRUGS (6)
  1. SYMBICORT [Suspect]
     Indication: ASTHMA
     Dosage: 160/4.5 MCG, 2 PUFFS TWICE DAILY
     Route: 055
  2. SINGULAIR [Concomitant]
  3. SULFASALIZINE [Concomitant]
  4. MOTRIN [Concomitant]
  5. VITAMINS [Concomitant]
  6. SUPPLEMENTS [Concomitant]

REACTIONS (4)
  - CHOKING SENSATION [None]
  - DYSPNOEA [None]
  - OROPHARYNGEAL PAIN [None]
  - TRACHEAL OEDEMA [None]
